FAERS Safety Report 15291992 (Version 11)
Quarter: 2019Q3

REPORT INFORMATION
  Report Type: Report from Study
  Country: US (occurrence: US)
  Receive Date: 20180818
  Receipt Date: 20190916
  Transmission Date: 20191004
  Serious: Yes (Other)
  Sender: FDA-Public Use
  Company Number: PHEH2018US033592

PATIENT
  Age: 62 Year
  Sex: Female
  Weight: 63 kg

DRUGS (9)
  1. SIMVASTATIN. [Concomitant]
     Active Substance: SIMVASTATIN
     Indication: PRODUCT USED FOR UNKNOWN INDICATION
     Dosage: 20 MG, UNK
     Route: 048
  2. KLONOPIN [Concomitant]
     Active Substance: CLONAZEPAM
     Indication: RESTLESS LEGS SYNDROME
     Dosage: 2 MG, UNK
     Route: 048
     Dates: start: 2000
  3. COREG [Concomitant]
     Active Substance: CARVEDILOL
     Indication: PRODUCT USED FOR UNKNOWN INDICATION
     Dosage: UNK
     Route: 065
  4. FUROSEMIDE. [Concomitant]
     Active Substance: FUROSEMIDE
     Indication: PRODUCT USED FOR UNKNOWN INDICATION
     Dosage: 20 MG, UNK
     Route: 048
  5. SINGULAIR [Concomitant]
     Active Substance: MONTELUKAST SODIUM
     Indication: PRODUCT USED FOR UNKNOWN INDICATION
     Dosage: 10 MG, UNK
     Route: 048
  6. PREDNISONE. [Suspect]
     Active Substance: PREDNISONE
     Indication: PRODUCT USED FOR UNKNOWN INDICATION
     Route: 065
  7. ENTRESTO [Suspect]
     Active Substance: SACUBITRIL\VALSARTAN
     Indication: CARDIAC FAILURE
     Dosage: 50 MG, BID (24MG OF SACUBITRIL AND 26MG OF VALSARTAN)
     Route: 048
     Dates: start: 20180401
  8. FLEXERIL [Concomitant]
     Active Substance: CYCLOBENZAPRINE HYDROCHLORIDE
     Indication: MUSCULOSKELETAL DISORDER
     Dosage: 10 MG, UNK
     Route: 048
  9. SPIRONOLACTONE. [Concomitant]
     Active Substance: SPIRONOLACTONE
     Indication: PRODUCT USED FOR UNKNOWN INDICATION
     Dosage: 25 MG, UNK
     Route: 048

REACTIONS (19)
  - Dyspnoea exertional [Unknown]
  - Device inappropriate shock delivery [Unknown]
  - Peripheral swelling [Unknown]
  - Fluid retention [Unknown]
  - Stress [Unknown]
  - Hypoacusis [Unknown]
  - Insomnia [Recovered/Resolved]
  - Speech disorder [Unknown]
  - Complication associated with device [Unknown]
  - Sleep apnoea syndrome [Unknown]
  - Swelling face [Unknown]
  - Fatigue [Unknown]
  - Nasopharyngitis [Unknown]
  - Weight fluctuation [Unknown]
  - Therapeutic response unexpected [Unknown]
  - Weight increased [Not Recovered/Not Resolved]
  - Memory impairment [Unknown]
  - Complication of device insertion [Unknown]
  - Tinnitus [Unknown]

NARRATIVE: CASE EVENT DATE: 20180611
